FAERS Safety Report 7593291-X (Version None)
Quarter: 2011Q3

REPORT INFORMATION
  Report Type: 
  Country: None (occurrence: None)
  Receive Date: 20110706
  Receipt Date: 20110627
  Transmission Date: 20111222
  Serious: Yes (Other)
  Sender: FDA-Public Use
  Company Number: GB-ASTRAZENECA-2011SE38630

PATIENT
  Age: 71 Year
  Sex: Male

DRUGS (6)
  1. PIPERACILLIN AND TAZOBACTAM [Suspect]
     Route: 042
  2. MEROPENEM [Suspect]
     Route: 042
  3. VANCOMYCIN [Suspect]
     Indication: PARASPINAL ABSCESS
  4. MEROPENEM [Suspect]
     Indication: PARASPINAL ABSCESS
     Route: 042
  5. VANCOMYCIN [Suspect]
  6. PIPERACILLIN AND TAZOBACTAM [Suspect]
     Indication: PARASPINAL ABSCESS
     Route: 042

REACTIONS (1)
  - DRUG RASH WITH EOSINOPHILIA AND SYSTEMIC SYMPTOMS [None]
